FAERS Safety Report 7430773-5 (Version None)
Quarter: 2011Q2

REPORT INFORMATION
  Report Type: 
  Country: None (occurrence: None)
  Receive Date: 20110421
  Receipt Date: 20110412
  Transmission Date: 20111010
  Serious: Yes (Hospitalization, Other)
  Sender: FDA-Public Use
  Company Number: PHHY2011US12364

PATIENT
  Sex: Male
  Weight: 87 kg

DRUGS (7)
  1. DILTIAZEM [Concomitant]
  2. DANAZOL [Concomitant]
  3. EXJADE [Suspect]
     Dosage: 1000 MG, DAILY
     Route: 048
  4. METOPROLOL [Concomitant]
  5. FLOMAX [Concomitant]
  6. FOLIC ACID [Concomitant]
  7. DECITABINE [Concomitant]

REACTIONS (9)
  - DIVERTICULITIS [None]
  - FEBRILE NEUTROPENIA [None]
  - NAUSEA [None]
  - DIARRHOEA [None]
  - PYREXIA [None]
  - SYNCOPE [None]
  - PNEUMONIA [None]
  - VOMITING [None]
  - CHILLS [None]
